FAERS Safety Report 6979550-X (Version None)
Quarter: 2010Q3

REPORT INFORMATION
  Report Type: 
  Country: None (occurrence: None)
  Receive Date: 20100910
  Receipt Date: 20100910
  Transmission Date: 20110219
  Serious: Yes (Other)
  Sender: FDA-Public Use
  Company Number: None

PATIENT
  Age: 49 Year
  Sex: Female
  Weight: 68.2 kg

DRUGS (7)
  1. HUMIRA(R) (ADALIMUMAB) 40 MG ABBOTT [Suspect]
     Indication: PSORIASIS
     Dosage: HUMIRA 40 MG/0.8 ML PEN Q0 WEEK 057
     Dates: start: 20100423
  2. HUMIRA(R) (ADALIMUMAB) 40 MG ABBOTT [Suspect]
     Indication: PSORIATIC ARTHROPATHY
     Dosage: HUMIRA 40 MG/0.8 ML PEN Q0 WEEK 057
     Dates: start: 20100423
  3. HUMIRA(R) (ADALIMUMAB) 40 MG ABBOTT [Suspect]
     Indication: PSORIASIS
     Dosage: HUMIRA 40 MG/0.8 ML PEN Q0 WEEK 057
     Dates: start: 20100615
  4. HUMIRA(R) (ADALIMUMAB) 40 MG ABBOTT [Suspect]
     Indication: PSORIATIC ARTHROPATHY
     Dosage: HUMIRA 40 MG/0.8 ML PEN Q0 WEEK 057
     Dates: start: 20100615
  5. ADDERALL 10 [Concomitant]
  6. EFFEXOR [Concomitant]
  7. VIVELLE-DOT [Concomitant]

REACTIONS (1)
  - HERPES ZOSTER [None]
